FAERS Safety Report 5543652-5 (Version None)
Quarter: 2007Q4

REPORT INFORMATION
  Report Type: 
  Country: None (occurrence: None)
  Receive Date: 20071210
  Receipt Date: 20061110
  Transmission Date: 20080405
  Serious: No
  Sender: FDA-Public Use
  Company Number: US-AMGEN-KDL199951

PATIENT
  Sex: Female

DRUGS (3)
  1. ENBREL [Suspect]
     Indication: PSORIATIC ARTHROPATHY
     Route: 058
     Dates: start: 20040401
  2. PLAQUENIL [Concomitant]
     Dates: start: 19990101
  3. METHOTREXATE [Concomitant]
     Route: 030
     Dates: start: 19990101

REACTIONS (4)
  - ARTHRALGIA [None]
  - LOCAL SWELLING [None]
  - STOMATITIS [None]
  - TOOTH DISORDER [None]
